FAERS Safety Report 23891302 (Version 3)
Quarter: 2024Q3

REPORT INFORMATION
  Report Type: Spontaneous
  Country: JP (occurrence: JP)
  Receive Date: 20240523
  Receipt Date: 20240722
  Transmission Date: 20241016
  Serious: Yes (Other)
  Sender: NOVARTIS
  Company Number: JP-002147023-NVSJ2024JP006091

PATIENT
  Age: 64 Year
  Sex: Male
  Weight: 95.3 kg

DRUGS (2)
  1. ENTRESTO [Suspect]
     Active Substance: SACUBITRIL\VALSARTAN
     Indication: Hypertension
     Dosage: 200 MG, QD
     Route: 048
     Dates: start: 20231003, end: 20231013
  2. ESAXERENONE [Concomitant]
     Active Substance: ESAXERENONE
     Indication: Hypertension
     Dosage: 5 MG, QD
     Route: 048
     Dates: start: 20230815

REACTIONS (3)
  - Blood pressure increased [Recovered/Resolved]
  - Insomnia [Unknown]
  - Tinnitus [Unknown]

NARRATIVE: CASE EVENT DATE: 20231013
